FAERS Safety Report 14356097 (Version 1)
Quarter: 2018Q1

REPORT INFORMATION
  Report Type: Spontaneous
  Country: US (occurrence: US)
  Receive Date: 20180104
  Receipt Date: 20180104
  Transmission Date: 20180509
  Serious: Yes (Disabling, Other)
  Sender: FDA-Public Use
  Company Number: None

PATIENT
  Age: 27 Year
  Sex: Male
  Weight: 66.6 kg

DRUGS (10)
  1. GRAPE SEED EXTRACT [Concomitant]
     Active Substance: DIETARY SUPPLEMENT\GRAPE SEED EXTRACT
  2. CFU PROBIOTIC [Concomitant]
  3. SACCARAMYCES BOULARDII [Concomitant]
  4. KEFIR YOGURT FRUIT SMOOTHIE [Concomitant]
  5. CLINDAMYCIN 350MG [Suspect]
     Active Substance: CLINDAMYCIN PHOSPHATE
     Indication: STAPHYLOCOCCAL INFECTION
     Dosage: ?          QUANTITY:40 TABLET(S);?
     Route: 048
     Dates: start: 20171105, end: 20171115
  6. CLINDAMYCIN 350MG [Suspect]
     Active Substance: CLINDAMYCIN PHOSPHATE
     Indication: CELLULITIS
     Dosage: ?          QUANTITY:40 TABLET(S);?
     Route: 048
     Dates: start: 20171105, end: 20171115
  7. METRONIDAZOLE. [Concomitant]
     Active Substance: METRONIDAZOLE
  8. VITAMIN C [Concomitant]
     Active Substance: ASCORBIC ACID
  9. ZINC. [Concomitant]
     Active Substance: ZINC
  10. PAPAYA ENZYME EXTRACT [Concomitant]

REACTIONS (1)
  - Clostridium difficile colitis [None]

NARRATIVE: CASE EVENT DATE: 20171113
